FAERS Safety Report 24439515 (Version 1)
Quarter: 2024Q4

REPORT INFORMATION
  Report Type: Spontaneous
  Country: RU (occurrence: RU)
  Receive Date: 20241015
  Receipt Date: 20241015
  Transmission Date: 20250115
  Serious: Yes (Other)
  Sender: BOEHRINGER INGELHEIM
  Company Number: RU-BoehringerIngelheim-2024-BI-055521

PATIENT
  Age: 64 Year
  Sex: Female
  Weight: 88 kg

DRUGS (3)
  1. EMPAGLIFLOZIN [Suspect]
     Active Substance: EMPAGLIFLOZIN
     Indication: Type 2 diabetes mellitus
     Dosage: FOR 6 MONTHS
  2. FORSIGA [Concomitant]
     Indication: Hypoglycaemia
  3. GLICLAZIDE [Concomitant]
     Active Substance: GLICLAZIDE
     Indication: Hypoglycaemia

REACTIONS (9)
  - Diabetic metabolic decompensation [Not Recovered/Not Resolved]
  - Neurodermatitis [Not Recovered/Not Resolved]
  - Urinary incontinence [Unknown]
  - Vaginal prolapse [Not Recovered/Not Resolved]
  - Postmenopause [Not Recovered/Not Resolved]
  - Cystocele [Unknown]
  - Atrophic vulvovaginitis [Not Recovered/Not Resolved]
  - Pelvic floor dysfunction [Unknown]
  - Obesity [Unknown]
